FAERS Safety Report 8067896-6 (Version None)
Quarter: 2012Q1

REPORT INFORMATION
  Report Type: 
  Country: None (occurrence: None)
  Receive Date: 20120124
  Receipt Date: 20110908
  Transmission Date: 20120608
  Serious: No
  Sender: FDA-Public Use
  Company Number: US-AMGEN-USASP2011041807

PATIENT
  Age: 79 Year
  Sex: Female

DRUGS (10)
  1. PROLIA [Suspect]
     Indication: OSTEOPOROSIS POSTMENOPAUSAL
     Dosage: 60 MG, Q6MO
     Route: 058
     Dates: start: 20101210
  2. XANAX [Concomitant]
     Dosage: 0.25 MG, UNK
  3. KEPPRA [Concomitant]
     Dosage: 750 MG, UNK
     Dates: start: 20060915
  4. PROLIA [Suspect]
     Dosage: 60 MG, Q6MO
     Route: 058
     Dates: start: 20110610, end: 20110610
  5. LOTENSIN [Concomitant]
     Dosage: 20 MG, UNK
     Dates: start: 20060907
  6. SINGULAIR [Concomitant]
     Dosage: 10 MG, UNK
  7. VITAMIN D [Concomitant]
     Dosage: UNK
     Dates: start: 20061031
  8. VITAMIN B-12 [Concomitant]
  9. MULTI-VITAMIN [Concomitant]
     Dosage: UNK
  10. CALCIUM [Concomitant]
     Dosage: 1000 MG, UNK

REACTIONS (12)
  - JOINT STIFFNESS [None]
  - GAIT DISTURBANCE [None]
  - CYSTITIS [None]
  - JOINT WARMTH [None]
  - FEELING COLD [None]
  - ARTHRALGIA [None]
  - ARTHRITIS [None]
  - MOBILITY DECREASED [None]
  - POLLAKIURIA [None]
  - URINARY TRACT INFECTION [None]
  - PAIN [None]
  - MUSCULOSKELETAL PAIN [None]
